FAERS Safety Report 25664778 (Version 1)
Quarter: 2025Q3

REPORT INFORMATION
  Report Type: Spontaneous
  Country: US (occurrence: None)
  Receive Date: 20250808
  Receipt Date: 20250808
  Transmission Date: 20251020
  Serious: Yes (Hospitalization)
  Sender: FDA-CTU
  Company Number: None

PATIENT
  Age: 78 Year
  Sex: Female
  Weight: 54 kg

DRUGS (2)
  1. BROMFENAC\MOXIFLOXACIN\PREDNISOLONE ACETATE [Suspect]
     Active Substance: BROMFENAC\MOXIFLOXACIN\PREDNISOLONE ACETATE
     Dates: start: 20250224, end: 20250328
  2. SYNTHROID [Concomitant]
     Active Substance: LEVOTHYROXINE SODIUM

REACTIONS (2)
  - Gastrointestinal inflammation [None]
  - Small intestinal obstruction [None]

NARRATIVE: CASE EVENT DATE: 20250613
